FAERS Safety Report 18450211 (Version 3)
Quarter: 2020Q4

REPORT INFORMATION
  Report Type: Spontaneous
  Country: CN (occurrence: CN)
  Receive Date: 20201030
  Receipt Date: 20201125
  Transmission Date: 20210114
  Serious: Yes (Other)
  Sender: FDA-Public Use
  Company Number: CN-ASTRAZENECA-2020SF39065

PATIENT
  Age: 67 Year
  Sex: Female

DRUGS (1)
  1. IRESSA [Suspect]
     Active Substance: GEFITINIB
     Indication: NON-SMALL CELL LUNG CANCER
     Route: 048
     Dates: start: 201808

REACTIONS (8)
  - Drug ineffective [Unknown]
  - Rash [Unknown]
  - Wound haemorrhage [Recovered/Resolved]
  - Varicose vein [Unknown]
  - Skin exfoliation [Unknown]
  - Productive cough [Not Recovered/Not Resolved]
  - Weight decreased [Not Recovered/Not Resolved]
  - Metastases to central nervous system [Not Recovered/Not Resolved]
